FAERS Safety Report 9458225 (Version 1)
Quarter: 2013Q3

REPORT INFORMATION
  Report Type: Spontaneous
  Country: US (occurrence: None)
  Receive Date: 20130813
  Receipt Date: 20130813
  Transmission Date: 20140515
  Serious: Yes (Hospitalization)
  Sender: FDA-Public Use
  Company Number: None

PATIENT
  Age: 60 Year
  Sex: Male
  Weight: 51.5 kg

DRUGS (1)
  1. FERRIPROX [Suspect]
     Indication: HAEMOCHROMATOSIS
     Dosage: 750MG AM + NOON ; 1000MG PM PO?
     Route: 048
     Dates: start: 20130616, end: 20130618

REACTIONS (1)
  - Clostridium difficile colitis [None]
